APPROVED DRUG PRODUCT: BANCAP HC
Active Ingredient: ACETAMINOPHEN; HYDROCODONE BITARTRATE
Strength: 500MG;5MG
Dosage Form/Route: CAPSULE;ORAL
Application: A087961 | Product #001
Applicant: FOREST PHARMACEUTICALS INC
Approved: Mar 17, 1983 | RLD: No | RS: No | Type: DISCN